FAERS Safety Report 6096037-X (Version None)
Quarter: 2009Q1

REPORT INFORMATION
  Report Type: 
  Country: None (occurrence: None)
  Receive Date: 20090227
  Receipt Date: 20080814
  Transmission Date: 20090719
  Serious: No
  Sender: FDA-Public Use
  Company Number: A0742641A

PATIENT
  Age: 11 Year
  Sex: Female

DRUGS (2)
  1. LAMICTAL [Suspect]
     Indication: EPILEPSY
     Dosage: 7.5MG TWICE PER DAY
     Route: 048
     Dates: start: 20080803
  2. NEURONTIN [Concomitant]

REACTIONS (1)
  - PRURITUS [None]
